FAERS Safety Report 7719507-4 (Version None)
Quarter: 2011Q3

REPORT INFORMATION
  Report Type: 
  Country: None (occurrence: None)
  Receive Date: 20110830
  Receipt Date: 20110824
  Transmission Date: 20111222
  Serious: Yes (Hospitalization, Other)
  Sender: FDA-Public Use
  Company Number: BR-MEDIMMUNE-MEDI-0013503

PATIENT
  Sex: Female
  Weight: 4.71 kg

DRUGS (2)
  1. PHENOBARBITAL TAB [Concomitant]
     Route: 050
     Dates: start: 20101001
  2. SYNAGIS [Suspect]
     Indication: BRONCHOPULMONARY DYSPLASIA
     Route: 030
     Dates: start: 20110401, end: 20110401

REACTIONS (4)
  - CELLULITIS [None]
  - INTESTINAL OBSTRUCTION [None]
  - CARDIAC ARREST [None]
  - HOSPITALISATION [None]
